FAERS Safety Report 18011756 (Version 1)
Quarter: 2020Q3

REPORT INFORMATION
  Report Type: Spontaneous
  Country: BE (occurrence: BE)
  Receive Date: 20200713
  Receipt Date: 20200713
  Transmission Date: 20201103
  Serious: Yes (Disabling)
  Sender: FDA-Public Use
  Company Number: BE-PFIZER INC-2020262409

PATIENT
  Age: 49 Year
  Sex: Female

DRUGS (2)
  1. MEDROL [Suspect]
     Active Substance: METHYLPREDNISOLONE
     Indication: PNEUMONIA
  2. AVELOX [Suspect]
     Active Substance: MOXIFLOXACIN HYDROCHLORIDE
     Indication: PNEUMONIA

REACTIONS (7)
  - Product use in unapproved indication [Unknown]
  - Off label use [Unknown]
  - Muscle rupture [Unknown]
  - Eye disorder [Unknown]
  - Depression [Not Recovered/Not Resolved]
  - Negative thoughts [Unknown]
  - Pain [Not Recovered/Not Resolved]

NARRATIVE: CASE EVENT DATE: 2019
